FAERS Safety Report 5870712-1 (Version None)
Quarter: 2008Q3

REPORT INFORMATION
  Report Type: 
  Country: None (occurrence: None)
  Receive Date: 20080904
  Receipt Date: 20080904
  Transmission Date: 20090109
  Serious: Yes (Hospitalization)
  Sender: FDA-Public Use
  Company Number: PHEH1996US08388

PATIENT
  Sex: Male
  Weight: 68.6 kg

DRUGS (8)
  1. SANDIMMUNE [Suspect]
     Route: 048
     Dates: start: 19951107
  2. PREDNISONE [Concomitant]
     Dosage: UNSPECIFIED
     Route: 065
  3. IMURAN [Concomitant]
     Dosage: UNSPECIFIED
     Route: 065
  4. MAGNESIUM OXIDE [Concomitant]
  5. PEPCID [Concomitant]
  6. BACTRIM SS (BACTRIM) [Concomitant]
  7. ZOVIRAX [Concomitant]
  8. PROCARDIA XL [Concomitant]

REACTIONS (1)
  - SUBCUTANEOUS ABSCESS [None]
